FAERS Safety Report 4587242-X (Version None)
Quarter: 2005Q1

REPORT INFORMATION
  Report Type: 
  Country: None (occurrence: None)
  Receive Date: 20050218
  Receipt Date: 20050203
  Transmission Date: 20050727
  Serious: Yes (Hospitalization)
  Sender: FDA-Public Use
  Company Number: DE-GLAXOSMITHKLINE-B0369836A

PATIENT
  Age: 55 Year
  Sex: Female
  Weight: 65 kg

DRUGS (2)
  1. LAMOTRIGINE [Suspect]
     Indication: BIPOLAR DISORDER
     Dosage: 100MG FOUR TIMES PER DAY
     Route: 048
     Dates: start: 20040408
  2. ORFIRIL [Concomitant]
     Indication: BIPOLAR DISORDER
     Dosage: 300MG TWICE PER DAY
     Route: 048
     Dates: start: 20011210

REACTIONS (6)
  - ACCIDENTAL OVERDOSE [None]
  - CHILLS [None]
  - DIFFICULTY IN WALKING [None]
  - DIZZINESS [None]
  - POISONING [None]
  - TREMOR [None]
